FAERS Safety Report 25538168 (Version 1)
Quarter: 2025Q3

REPORT INFORMATION
  Report Type: Spontaneous
  Country: EU (occurrence: EU)
  Receive Date: 20250710
  Receipt Date: 20250710
  Transmission Date: 20251020
  Serious: Yes (Hospitalization)
  Sender: RANBAXY
  Company Number: EU-SUN PHARMACEUTICAL INDUSTRIES LTD-2025RR-516033

PATIENT
  Age: 87 Year
  Sex: Female
  Weight: 53 kg

DRUGS (3)
  1. PANTOPRAZOLE [Suspect]
     Active Substance: PANTOPRAZOLE
     Indication: Haematemesis
     Route: 048
     Dates: start: 20250217, end: 20250303
  2. PANTOPRAZOLE [Suspect]
     Active Substance: PANTOPRAZOLE
     Indication: Abdominal pain upper
  3. ERTAPENEM [Suspect]
     Active Substance: ERTAPENEM
     Indication: Erysipelas
     Dosage: 1 GRAM, DAILY
     Route: 040
     Dates: start: 20250217, end: 20250305

REACTIONS (1)
  - Hallucination, visual [Recovered/Resolved]

NARRATIVE: CASE EVENT DATE: 20250303
